FAERS Safety Report 7243216-1 (Version None)
Quarter: 2011Q1

REPORT INFORMATION
  Report Type: 
  Country: None (occurrence: None)
  Receive Date: 20110125
  Receipt Date: 20110121
  Transmission Date: 20110831
  Serious: Yes (Death, Other)
  Sender: FDA-Public Use
  Company Number: BR-ROCHE-730453

PATIENT
  Sex: Female
  Weight: 59 kg

DRUGS (8)
  1. METICORTEN [Concomitant]
  2. ALIVIUM [Concomitant]
     Dosage: DRUG REPORTED ALIVIUM 600
  3. CORTISONE [Concomitant]
  4. OMEPRAZOLE [Concomitant]
  5. CALCIUM [Concomitant]
  6. TOCILIZUMAB [Suspect]
     Dosage: FORM: INFUSION; FREQUENCY: CYCLIC
     Route: 065
     Dates: start: 20090101, end: 20090101
  7. RITUXIMAB [Suspect]
     Dosage: FORM: INFUSION
     Route: 065
     Dates: start: 20090101, end: 20090101
  8. ARADOIS [Concomitant]

REACTIONS (6)
  - SEPTIC SHOCK [None]
  - PYREXIA [None]
  - HYPERTENSION [None]
  - DRUG INEFFECTIVE [None]
  - CARDIOMYOPATHY [None]
  - HYPERSENSITIVITY [None]
